FAERS Safety Report 23276431 (Version 4)
Quarter: 2024Q2

REPORT INFORMATION
  Report Type: Report from Study
  Country: US (occurrence: US)
  Receive Date: 20231208
  Receipt Date: 20240607
  Transmission Date: 20240716
  Serious: No
  Sender: FDA-Public Use
  Company Number: US-AstraZeneca-CH-00522357A

PATIENT
  Sex: Male

DRUGS (1)
  1. ULTOMIRIS [Suspect]
     Active Substance: RAVULIZUMAB-CWVZ
     Indication: Myasthenia gravis
     Dosage: UNK
     Route: 042

REACTIONS (5)
  - Gait disturbance [Unknown]
  - Urinary tract disorder [Unknown]
  - Poor venous access [Recovered/Resolved]
  - Drug ineffective [Unknown]
  - Diarrhoea [Unknown]
